FAERS Safety Report 6770441-6 (Version None)
Quarter: 2010Q2

REPORT INFORMATION
  Report Type: 
  Country: None (occurrence: None)
  Receive Date: 20100615
  Receipt Date: 20100603
  Transmission Date: 20101027
  Serious: Yes (Other)
  Sender: FDA-Public Use
  Company Number: GB-PFIZER INC-2010070141

PATIENT
  Age: 80 Year
  Sex: Female

DRUGS (1)
  1. ZYVOX [Suspect]
     Indication: GRAFT INFECTION
     Dosage: 600 MG, 2X/DAY
     Route: 048

REACTIONS (3)
  - DIZZINESS [None]
  - NAUSEA [None]
  - SUICIDAL IDEATION [None]
